FAERS Safety Report 7385316-1 (Version None)
Quarter: 2011Q1

REPORT INFORMATION
  Report Type: 
  Country: None (occurrence: None)
  Receive Date: 20110330
  Receipt Date: 20100726
  Transmission Date: 20110831
  Serious: No
  Sender: FDA-Public Use
  Company Number: US-MYLANLABS-2010S1012345

PATIENT
  Age: 58 Year
  Sex: Male

DRUGS (2)
  1. EMSAM [Suspect]
     Indication: BIPOLAR DISORDER
     Dosage: Q24H
     Route: 062
     Dates: start: 20100701
  2. EMSAM [Suspect]
     Indication: BIPOLAR I DISORDER
     Dosage: Q24H
     Route: 062
     Dates: start: 20100701

REACTIONS (2)
  - FEELING DRUNK [None]
  - DIZZINESS [None]
